FAERS Safety Report 6888698-X (Version None)
Quarter: 2010Q3

REPORT INFORMATION
  Report Type: 
  Country: None (occurrence: None)
  Receive Date: 20100730
  Receipt Date: 20071020
  Transmission Date: 20110219
  Serious: No
  Sender: FDA-Public Use
  Company Number: US-PFIZER INC-2007077855

PATIENT
  Sex: Male
  Weight: 68.04 kg

DRUGS (2)
  1. LIPITOR [Suspect]
     Indication: BLOOD CHOLESTEROL INCREASED
     Route: 048
     Dates: start: 20070811, end: 20070907
  2. ACETYLSALICYLIC ACID SRT [Concomitant]

REACTIONS (1)
  - BREAST ENLARGEMENT [None]
